FAERS Safety Report 16590248 (Version 1)
Quarter: 2019Q3

REPORT INFORMATION
  Report Type: Spontaneous
  Country: US (occurrence: US)
  Receive Date: 20190718
  Receipt Date: 20190718
  Transmission Date: 20191004
  Serious: Yes (Other)
  Sender: FDA-Public Use
  Company Number: US-GILEAD-2019-0418489

PATIENT
  Sex: Male

DRUGS (1)
  1. COMPLERA [Suspect]
     Active Substance: EMTRICITABINE\RILPIVIRINE HYDROCHLORIDE\TENOFOVIR DISOPROXIL FUMARATE
     Indication: HIV INFECTION
     Dosage: UNK
     Route: 048
     Dates: start: 2014, end: 2016

REACTIONS (13)
  - Osteoarthritis [Unknown]
  - Arthralgia [Unknown]
  - Pain [Not Recovered/Not Resolved]
  - Osteopenia [Unknown]
  - Economic problem [Not Recovered/Not Resolved]
  - Anhedonia [Not Recovered/Not Resolved]
  - Osteonecrosis [Unknown]
  - Ill-defined disorder [Unknown]
  - Emotional distress [Not Recovered/Not Resolved]
  - Anxiety [Not Recovered/Not Resolved]
  - Synovial cyst [Unknown]
  - Rheumatoid arthritis [Unknown]
  - Carpal tunnel syndrome [Unknown]
